FAERS Safety Report 19759779 (Version 1)
Quarter: 2021Q3

REPORT INFORMATION
  Report Type: Spontaneous
  Country: US (occurrence: US)
  Receive Date: 20210830
  Receipt Date: 20210830
  Transmission Date: 20211014
  Serious: No
  Sender: FDA-Public Use
  Company Number: US-TEVA-2021-US-1939317

PATIENT
  Sex: Male

DRUGS (1)
  1. CLONAZEPAM. [Suspect]
     Active Substance: CLONAZEPAM
     Indication: PANIC ATTACK
     Dosage: TAKE 2MG STRENGTH TABLET IN MORNING AND 4 TABLET OF 0.5MG OUT OF WHICH HE BREAK ONE TABLET INTO HALF
     Route: 048
     Dates: start: 1996

REACTIONS (2)
  - Adverse event [Unknown]
  - Therapeutic product effect variable [Unknown]

NARRATIVE: CASE EVENT DATE: 202107
